FAERS Safety Report 24248693 (Version 1)
Quarter: 2024Q3

REPORT INFORMATION
  Report Type: Spontaneous
  Country: GB (occurrence: GB)
  Receive Date: 20240826
  Receipt Date: 20240826
  Transmission Date: 20241017
  Serious: Yes (Other)
  Sender: TEVA
  Company Number: None

PATIENT
  Age: 37 Year
  Sex: Female

DRUGS (10)
  1. PREDNISOLONE [Suspect]
     Active Substance: PREDNISOLONE
     Dosage: FOUR TO BE TAKEN EACH DAY - PXD ON TTO 07/03/24 (REDUCING COURSE DOWN TO 20MG OM) - PT CONFIRMS I...
     Route: 065
  2. ANAKINRA [Concomitant]
     Active Substance: ANAKINRA
     Dosage: FORM STRENGTH: 100 MG / 0.67 ML, EVERY DAY IN THE MORNING - PXD ON TTO 07/03/24 - PT SAYS THAT SH...
  3. HYDROXYCHLOROQUINE [Concomitant]
     Active Substance: HYDROXYCHLOROQUINE
     Dosage: PXD ON TTO 07/03/24
  4. NYSTATIN [Concomitant]
     Active Substance: NYSTATIN
     Dosage: 100,000UNITS/ML 1ML QDS FOR 3 DAYS - PT FINISHED COURSE
  5. FLUCONAZOLE [Concomitant]
     Active Substance: FLUCONAZOLE
     Dosage: 1 OM FOR 3 DAYS - PT FINISHED COURSE
  6. ENSURE [Concomitant]
     Active Substance: AMINO ACIDS\DEXTROSE\ELECTROLYTES NOS\SOYBEAN OIL\VITAMINS
     Dosage: 4 MILKSHAKE STYLE ENSURES A DAY - SAYS SHE HAS LOTS OF THEM AT HOME TTO 07/03/24, MILKSHAKE STYLE...
  7. CALCIUM CARBONATE\CHOLECALCIFEROL [Concomitant]
     Active Substance: CALCIUM CARBONATE\CHOLECALCIFEROL
     Dosage: FORM STRENGTH: 1500 MG / 400 UNIT
  8. CETIRIZINE [Concomitant]
     Active Substance: CETIRIZINE HYDROCHLORIDE
     Dosage: 1 ON - PT SAYS DOESN^T TAKE
  9. FAMOTIDINE [Concomitant]
     Active Substance: FAMOTIDINE
     Dosage: IN THE MORNING - PXD ON TTO 07/03/24
  10. LANSOPRAZOLE [Concomitant]
     Active Substance: LANSOPRAZOLE
     Dosage: EACH MORNING - PXD ON TTO 07/03/24

REACTIONS (1)
  - Psychotic disorder [Unknown]
